FAERS Safety Report 6628275-9 (Version None)
Quarter: 2010Q1

REPORT INFORMATION
  Report Type: 
  Country: None (occurrence: None)
  Receive Date: 20100311
  Receipt Date: 20100308
  Transmission Date: 20100710
  Serious: Yes (Death, Hospitalization)
  Sender: FDA-Public Use
  Company Number: IT-JNJFOC-20100110977

PATIENT
  Sex: Female
  Weight: 100 kg

DRUGS (8)
  1. RISPERDAL [Suspect]
     Indication: ABNORMAL BEHAVIOUR
     Route: 048
  2. INEGY [Concomitant]
     Indication: HYPERCHOLESTEROLAEMIA
     Route: 048
  3. NORVASC [Concomitant]
     Indication: HYPERTENSION
     Route: 048
  4. TRIATEC [Concomitant]
     Indication: HYPERTENSION
     Route: 048
  5. ALLOPURINOL [Concomitant]
     Indication: HYPERURICAEMIA
     Route: 048
  6. SEACOR [Concomitant]
     Indication: HYPERTRIGLYCERIDAEMIA
     Route: 048
  7. LASIX [Concomitant]
     Indication: OEDEMA
     Route: 048
  8. FERRO-GRAD [Concomitant]
     Indication: ANAEMIA
     Route: 048

REACTIONS (2)
  - INAPPROPRIATE SCHEDULE OF DRUG ADMINISTRATION [None]
  - SOPOR [None]
